FAERS Safety Report 9680743 (Version 7)
Quarter: 2014Q1

REPORT INFORMATION
  Report Type: Report from Study
  Country: JP (occurrence: JP)
  Receive Date: 20131111
  Receipt Date: 20140310
  Transmission Date: 20141002
  Serious: Yes (Hospitalization)
  Sender: FDA-Public Use
  Company Number: PHHO2013JP014211

PATIENT
  Age: 63 Year
  Sex: Female
  Weight: 50 kg

DRUGS (13)
  1. SOM230 [Suspect]
     Indication: PITUITARY-DEPENDENT CUSHING^S SYNDROME
     Dosage: DOSE BLINDED
     Dates: start: 20130402, end: 20131015
  2. SOM230 [Suspect]
     Dosage: DOSE BLINDED
     Dates: start: 20131016
  3. DIOVAN [Concomitant]
     Indication: HYPERTENSION
     Dosage: 160 MG, UNK
     Route: 048
     Dates: start: 20120814
  4. DIOVAN [Concomitant]
     Dosage: 80 MG, UNK
  5. THYRADIN S [Concomitant]
     Indication: HYPOTHYROIDISM
     Dosage: 75 UG, UNK
     Route: 048
     Dates: start: 20120719
  6. CALBLOCK [Concomitant]
     Indication: HYPERTENSION
     Dosage: 16 MG, UNK
     Route: 048
     Dates: start: 201206
  7. JANUVIA [Concomitant]
     Indication: DIABETES MELLITUS
     Dosage: 100 MG, UNK
     Route: 048
     Dates: start: 201302
  8. BONALON [Concomitant]
     Indication: OSTEOPOROSIS
     Dosage: 5 MG, UNK
     Route: 048
     Dates: start: 201302
  9. CRESTOR [Concomitant]
     Indication: DYSLIPIDAEMIA
     Dosage: 2.5 MG, UNK
     Route: 048
     Dates: start: 201302
  10. VITANEURIN                         /02035001/ [Concomitant]
     Indication: DYSGEUSIA
     Dosage: 100 MG, UNK
     Route: 048
     Dates: start: 20131016
  11. LANTUS [Concomitant]
     Indication: DIABETES MELLITUS
     Dosage: 10 IU, UNK
     Route: 058
     Dates: start: 20130422
  12. CORTRIL [Concomitant]
     Indication: ADRENAL INSUFFICIENCY
     Dosage: UNK
     Route: 048
     Dates: start: 20140203, end: 20140228
  13. VITAMEDIN                          /00176001/ [Concomitant]
     Indication: DYSGEUSIA
     Dosage: 4 DF, UNK
     Route: 048
     Dates: start: 20131016

REACTIONS (2)
  - Adrenal insufficiency [Recovered/Resolved]
  - Large intestine polyp [Recovered/Resolved]
